FAERS Safety Report 17372600 (Version 1)
Quarter: 2020Q1

REPORT INFORMATION
  Report Type: Spontaneous
  Country: FR (occurrence: FR)
  Receive Date: 20200205
  Receipt Date: 20200205
  Transmission Date: 20200409
  Serious: Yes (Hospitalization)
  Sender: FDA-Public Use
  Company Number: FR-JNJFOC-20200149144

PATIENT
  Age: 35 Year
  Sex: Female

DRUGS (3)
  1. RISPERDAL [Suspect]
     Active Substance: RISPERIDONE
     Indication: WRONG PATIENT RECEIVED PRODUCT
     Dosage: ; IN TOTAL
     Route: 048
     Dates: start: 20200101, end: 20200101
  2. TERCIAN [Interacting]
     Active Substance: CYAMEMAZINE
     Indication: WRONG PATIENT RECEIVED PRODUCT
     Dosage: ; IN TOTAL
     Route: 065
     Dates: start: 20200101, end: 20200101
  3. ALPRAZOLAM. [Suspect]
     Active Substance: ALPRAZOLAM
     Indication: WRONG PATIENT RECEIVED PRODUCT
     Route: 065
     Dates: start: 20200101, end: 20200101

REACTIONS (5)
  - Wrong patient received product [Recovered/Resolved]
  - Blood pressure decreased [Recovered/Resolved]
  - Drug interaction [Recovered/Resolved]
  - Pneumonia aspiration [Recovering/Resolving]
  - Disturbance in attention [Recovered/Resolved]

NARRATIVE: CASE EVENT DATE: 20200101
